FAERS Safety Report 22137257 (Version 3)
Quarter: 2023Q2

REPORT INFORMATION
  Report Type: Report from Study
  Country: CH (occurrence: CH)
  Receive Date: 20230325
  Receipt Date: 20230503
  Transmission Date: 20230721
  Serious: Yes (Death)
  Sender: FDA-Public Use
  Company Number: CH-ABBVIE-4310115

PATIENT
  Age: 87 Year
  Sex: Female
  Weight: 48 kg

DRUGS (3)
  1. CARBIDOPA\LEVODOPA [Suspect]
     Active Substance: CARBIDOPA\LEVODOPA
     Indication: Parkinson^s disease
     Dosage: MD: 6.5 ML, CRD: 4.4 ML/H, ED: 1.5 ML, 16H THERAPY
     Route: 050
     Dates: start: 20230307, end: 20230323
  2. CARBIDOPA\LEVODOPA [Suspect]
     Active Substance: CARBIDOPA\LEVODOPA
     Dosage: MD: 6.5 ML, CRD: 4.4 ML/H, ED: 1.5 ML
     Route: 050
     Dates: start: 20230209, end: 20230307
  3. CARBIDOPA\LEVODOPA [Suspect]
     Active Substance: CARBIDOPA\LEVODOPA
     Dosage: RELATED TO PRODUCT COMPLAINT: TRUE
     Route: 050
     Dates: start: 20181023

REACTIONS (11)
  - Left ventricular failure [Fatal]
  - Device alarm issue [Recovered/Resolved]
  - Malaise [Not Recovered/Not Resolved]
  - Communication disorder [Not Recovered/Not Resolved]
  - Unevaluable event [Not Recovered/Not Resolved]
  - General physical health deterioration [Not Recovered/Not Resolved]
  - Device issue [Recovered/Resolved]
  - Infection [Recovered/Resolved]
  - Wheelchair user [Not Recovered/Not Resolved]
  - General physical health deterioration [Recovered/Resolved]
  - Haemoglobin decreased [Unknown]

NARRATIVE: CASE EVENT DATE: 20210919
